FAERS Safety Report 21822989 (Version 1)
Quarter: 2023Q1

REPORT INFORMATION
  Report Type: Spontaneous
  Country: US (occurrence: US)
  Receive Date: 20230105
  Receipt Date: 20230105
  Transmission Date: 20230417
  Serious: No
  Sender: FDA-Public Use
  Company Number: US-AMNEAL PHARMACEUTICALS-2022-AMRX-01062

PATIENT
  Age: 40 Year
  Sex: Female
  Weight: 97.2 kg

DRUGS (13)
  1. ACTIVELLA [Suspect]
     Active Substance: ESTRADIOL\NORETHINDRONE ACETATE
     Indication: Uterine leiomyoma
     Dosage: ELAGOLIX 300MG, ESTRADIOL/NORETHINDRONE 1.0MG/0.5MG (1 IN 1 D)
     Route: 048
     Dates: start: 20180725, end: 20190625
  2. ELAGOLIX [Suspect]
     Active Substance: ELAGOLIX
     Indication: Uterine leiomyoma
     Dosage: 300 MG, 1 IN L D
     Route: 048
     Dates: start: 20180725, end: 20190625
  3. ACTIVELLA [Suspect]
     Active Substance: ESTRADIOL\NORETHINDRONE ACETATE
     Indication: Uterine leiomyoma
     Dosage: ELAGOLIX 300 MG, ESTRADIOL/NORETHINDRONE 1.0MG/0.5MG (1 IN 1 D)
     Route: 048
     Dates: start: 20190626
  4. ELAGOLIX [Suspect]
     Active Substance: ELAGOLIX
     Indication: Uterine leiomyoma
     Dosage: 300 MILLIGRAM, 1 /DAY
     Route: 048
     Dates: start: 20190626
  5. HYDROCHLOROTHIAZIDE [Concomitant]
     Active Substance: HYDROCHLOROTHIAZIDE
     Indication: Hypertension
     Route: 048
  6. RANITIDINE [Concomitant]
     Active Substance: RANITIDINE
     Indication: Gastrooesophageal reflux disease
     Route: 048
  7. IBUPROFEN [Concomitant]
     Active Substance: IBUPROFEN
     Indication: Back pain
     Dosage: 800 MILLIGRAM, 1 AS REQUIRED
     Route: 048
     Dates: start: 2017
  8. DOCUSATE SODIUM [Concomitant]
     Active Substance: DOCUSATE SODIUM
     Indication: Faeces hard
     Dosage: 100 MILLIGRAM, 2 /DAY
     Route: 048
     Dates: start: 20180620
  9. ERGOCALCIFEROL [Concomitant]
     Active Substance: ERGOCALCIFEROL
     Indication: Vitamin D decreased
     Dosage: 1000 INTERNATIONAL UNIT, 1 /DAY
     Route: 048
     Dates: start: 20180710
  10. FERROUS SULFATE [Concomitant]
     Active Substance: FERROUS SULFATE
     Indication: Blood iron decreased
     Dosage: 325 MILLIGRAM, 1 /DAY
     Route: 048
     Dates: start: 20190115
  11. IBUPROFEN [Concomitant]
     Active Substance: IBUPROFEN
     Indication: Biopsy endometrium
     Dosage: 800 MILLIGRAM, 1 /DAY
     Route: 048
     Dates: start: 20190626
  12. AMLODIPINE BESYLATE [Concomitant]
     Active Substance: AMLODIPINE BESYLATE
     Indication: Hypertension
     Dosage: 10 MILLIGRAM, 1 /DAY
     Route: 048
     Dates: start: 20190816
  13. BIOTIN [Concomitant]
     Active Substance: BIOTIN
     Indication: Alopecia
     Dosage: 1000 MICROGRAM
     Route: 048
     Dates: start: 20190816

REACTIONS (1)
  - Alopecia [Recovered/Resolved]

NARRATIVE: CASE EVENT DATE: 20200601
